FAERS Safety Report 8848707 (Version 1)
Quarter: 2012Q4

REPORT INFORMATION
  Report Type: Spontaneous
  Country: US (occurrence: None)
  Receive Date: 20121017
  Receipt Date: 20121017
  Transmission Date: 20130627
  Serious: No
  Sender: FDA-Public Use
  Company Number: None

PATIENT
  Age: 7 Year
  Sex: Female
  Weight: 26.9 kg

DRUGS (1)
  1. PENTAM 300 [Suspect]
     Indication: PROPHYLAXIS
     Route: 041
     Dates: start: 20120815, end: 20121012

REACTIONS (4)
  - Abdominal pain lower [None]
  - Diarrhoea [None]
  - Nausea [None]
  - Muscle spasms [None]
